FAERS Safety Report 8587614-2 (Version None)
Quarter: 2012Q3

REPORT INFORMATION
  Report Type: 
  Country: None (occurrence: None)
  Receive Date: 20120811
  Receipt Date: 20120806
  Transmission Date: 20120928
  Serious: No
  Sender: FDA-Public Use
  Company Number: US-009507513-1208USA003077

PATIENT

DRUGS (3)
  1. NEXPLANON [Suspect]
     Indication: CONTRACEPTION
     Dosage: 68 MG, 3 YEARS IMPLANT
     Route: 059
     Dates: start: 20120615, end: 20120615
  2. CELEXA [Concomitant]
  3. NEXPLANON [Suspect]
     Dosage: 68 MG, 3 YEARS IMPLANT
     Route: 059
     Dates: start: 20120615

REACTIONS (2)
  - MEDICAL DEVICE COMPLICATION [None]
  - NO ADVERSE EVENT [None]
